FAERS Safety Report 5386835-X (Version None)
Quarter: 2007Q3

REPORT INFORMATION
  Report Type: 
  Country: None (occurrence: None)
  Receive Date: 20070713
  Receipt Date: 20070710
  Transmission Date: 20080115
  Serious: Yes (Other)
  Sender: FDA-Public Use
  Company Number: US-ROXANE LABORATORIES, INC-2007-DE-04073GD

PATIENT
  Age: 64 Year
  Sex: Male
  Weight: 90 kg

DRUGS (6)
  1. ASPIRIN [Suspect]
     Indication: ACUTE MYOCARDIAL INFARCTION
  2. MORPHINE SULFATE [Suspect]
     Indication: ACUTE MYOCARDIAL INFARCTION
     Route: 042
  3. NITROGLYCERIN [Suspect]
     Indication: ACUTE MYOCARDIAL INFARCTION
     Route: 060
  4. NITROGLYCERIN [Suspect]
     Dosage: 5 MCG/MIN
     Route: 042
  5. METOPROLOL SUCCINATE [Suspect]
     Indication: ACUTE MYOCARDIAL INFARCTION
     Route: 042
  6. LOSARTAN POTASSIUM [Concomitant]
     Indication: HYPERTENSION

REACTIONS (2)
  - ACUTE MYOCARDIAL INFARCTION [None]
  - DRUG INEFFECTIVE [None]
